FAERS Safety Report 18236864 (Version 1)
Quarter: 2020Q3

REPORT INFORMATION
  Report Type: Spontaneous
  Country: IT (occurrence: IT)
  Receive Date: 20200907
  Receipt Date: 20200907
  Transmission Date: 20201103
  Serious: Yes (Hospitalization, Other)
  Sender: FDA-Public Use
  Company Number: IT-LUPIN PHARMACEUTICALS INC.-2020-05544

PATIENT
  Age: 8 Year
  Sex: Male

DRUGS (23)
  1. KETOTIFEN [Suspect]
     Active Substance: KETOTIFEN
     Indication: CONJUNCTIVITIS
     Dosage: UNK
     Route: 065
  2. CYCLOSPORINE. [Suspect]
     Active Substance: CYCLOSPORINE
     Indication: VERNAL KERATOCONJUNCTIVITIS
     Dosage: 50 MILLIGRAM
     Route: 048
  3. BETAMETHASONE. [Concomitant]
     Active Substance: BETAMETHASONE
     Indication: EYE INFLAMMATION
     Dosage: UNK
     Route: 065
  4. CETIRIZINE [Suspect]
     Active Substance: CETIRIZINE HYDROCHLORIDE
     Indication: CONJUNCTIVAL DISORDER
  5. MOMETASONE FUROATE. [Suspect]
     Active Substance: MOMETASONE FUROATE
     Indication: CONJUNCTIVITIS
     Dosage: UNK, TOPICAL MOMETASONE NASAL SPRAY DURING SPRING AND SUMMER MONTHS
     Route: 061
  6. CETIRIZINE [Suspect]
     Active Substance: CETIRIZINE HYDROCHLORIDE
     Indication: CONJUNCTIVITIS
  7. PREDNISONE. [Suspect]
     Active Substance: PREDNISONE
     Indication: VERNAL KERATOCONJUNCTIVITIS
     Dosage: ORAL THERAPY TO BE TAKEN 5 DAYS/WEEK
     Route: 048
  8. PREDNISONE. [Suspect]
     Active Substance: PREDNISONE
     Dosage: REDUCTION OF PREDNISONE TO ALTERNATE DAYS
     Route: 048
  9. PREDNISONE. [Suspect]
     Active Substance: PREDNISONE
     Dosage: 5 MG/TWICE DAILY (BID)
     Route: 048
     Dates: start: 201703
  10. BETAMETHASONE. [Concomitant]
     Active Substance: BETAMETHASONE
     Indication: KERATITIS
  11. FLUOCINOLONE [Suspect]
     Active Substance: FLUOCINOLONE
     Indication: VERNAL KERATOCONJUNCTIVITIS
  12. NEDOCROMIL [Suspect]
     Active Substance: NEDOCROMIL
     Indication: CONJUNCTIVITIS
     Dosage: UNK
     Route: 047
  13. LEVOCETIRIZINE [Suspect]
     Active Substance: LEVOCETIRIZINE
     Indication: CONJUNCTIVITIS
     Dosage: UNK
     Route: 065
  14. KETOTIFEN [Suspect]
     Active Substance: KETOTIFEN
     Dosage: 2 MILLIGRAM, QD (ORAL THERAPY TO BE TAKEN 5 DAYS/WEEK2 MILLIGRAM, QD)
     Route: 048
  15. LEVOCETIRIZINE [Suspect]
     Active Substance: LEVOCETIRIZINE
     Indication: CONJUNCTIVAL DISORDER
  16. CYCLOSPORINE. [Suspect]
     Active Substance: CYCLOSPORINE
     Dosage: ORAL FORMULATION WAS REINTRODUCED 6 DAYS/WEEK FOR WORSENING OF SYMPTOMS
     Route: 048
  17. CETIRIZINE [Suspect]
     Active Substance: CETIRIZINE HYDROCHLORIDE
     Indication: DERMATITIS ATOPIC
     Dosage: UNK
     Route: 065
  18. FLUOCINOLONE [Suspect]
     Active Substance: FLUOCINOLONE
     Indication: CONJUNCTIVITIS
     Dosage: LOW?DOSE
     Route: 061
  19. NEDOCROMIL [Suspect]
     Active Substance: NEDOCROMIL
     Indication: VERNAL KERATOCONJUNCTIVITIS
  20. KETOTIFEN [Suspect]
     Active Substance: KETOTIFEN
     Indication: VERNAL KERATOCONJUNCTIVITIS
     Dosage: UNK
     Route: 047
  21. PREDNISONE. [Suspect]
     Active Substance: PREDNISONE
     Dosage: REDUCED TO ONCE A DAY
     Route: 048
     Dates: start: 2017
  22. CYCLOSPORINE. [Suspect]
     Active Substance: CYCLOSPORINE
     Dosage: UNK
     Route: 061
  23. BETAMETHASONE. [Concomitant]
     Active Substance: BETAMETHASONE
     Indication: ULCERATIVE KERATITIS

REACTIONS (3)
  - Therapy non-responder [Unknown]
  - Ocular hypertension [Unknown]
  - Drug ineffective [Unknown]
